FAERS Safety Report 7055727-2 (Version None)
Quarter: 2010Q4

REPORT INFORMATION
  Report Type: 
  Country: None (occurrence: None)
  Receive Date: 20101021
  Receipt Date: 20101011
  Transmission Date: 20110411
  Serious: Yes (Hospitalization)
  Sender: FDA-Public Use
  Company Number: DE-JNJFOC-20100803456

PATIENT
  Sex: Female
  Weight: 49.4 kg

DRUGS (8)
  1. SIMPONI [Suspect]
     Indication: RHEUMATOID ARTHRITIS
     Route: 058
  2. PREDNISOLONE [Concomitant]
  3. ARCOXIA [Concomitant]
  4. PANTOPRAZOLE SODIUM [Concomitant]
  5. CIPRODEX [Concomitant]
  6. CALCIUM [Concomitant]
  7. FORZID [Concomitant]
  8. METHOTREXATE [Concomitant]

REACTIONS (1)
  - SYPHILIS [None]
